FAERS Safety Report 13387994 (Version 1)
Quarter: 2017Q1

REPORT INFORMATION
  Report Type: Spontaneous
  Country: US (occurrence: US)
  Receive Date: 20170330
  Receipt Date: 20170330
  Transmission Date: 20170429
  Serious: Yes (Other)
  Sender: FDA-Public Use
  Company Number: US-STRIDES ARCOLAB LIMITED-2017SP005407

PATIENT

DRUGS (10)
  1. METHYLPREDNISOLONE. [Concomitant]
     Active Substance: METHYLPREDNISOLONE
     Indication: IRIDOCYCLITIS
     Dosage: 30 MG/KG, UNK
  2. MYCOPHENOLATE MOFETIL. [Suspect]
     Active Substance: MYCOPHENOLATE MOFETIL
     Indication: IRIDOCYCLITIS
     Dosage: 750 MG, BID
     Route: 065
  3. GLUCOCORTICOIDS [Concomitant]
     Active Substance: UNSPECIFIED INGREDIENT
     Indication: HISTIOCYTOSIS HAEMATOPHAGIC
  4. METHOTREXATE (METHOTREXATE SODIUM) [Concomitant]
     Active Substance: METHOTREXATE SODIUM
     Indication: IRIDOCYCLITIS
     Dosage: 25 MG, ONCE A WEEK
     Route: 058
  5. GLUCOCORTICOIDS [Concomitant]
     Active Substance: UNSPECIFIED INGREDIENT
     Indication: IRIDOCYCLITIS
     Dosage: UNK UNK, UNKNOWN
     Route: 065
  6. IMMUNOGLOBULIN                     /00025201/ [Concomitant]
     Active Substance: HUMAN IMMUNOGLOBULIN G
     Indication: IRIDOCYCLITIS
     Dosage: 2 G/KG ,QD
     Route: 042
  7. INFLIXIMAB [Concomitant]
     Active Substance: INFLIXIMAB
     Indication: IRIDOCYCLITIS
     Dosage: 10 MG/KG, EVERY 4 HRS
     Route: 065
  8. IMMUNOGLOBULIN                     /00025201/ [Concomitant]
     Active Substance: HUMAN IMMUNOGLOBULIN G
     Indication: HISTIOCYTOSIS HAEMATOPHAGIC
  9. PREDNISOLONE. [Concomitant]
     Active Substance: PREDNISOLONE
     Indication: IRIDOCYCLITIS
     Dosage: UNK, UNKNOWN
     Route: 065
  10. MYCOPHENOLATE MOFETIL. [Suspect]
     Active Substance: MYCOPHENOLATE MOFETIL
     Dosage: UNK
     Route: 047

REACTIONS (2)
  - Drug ineffective for unapproved indication [Unknown]
  - Off label use [Unknown]
